FAERS Safety Report 5639865-4 (Version None)
Quarter: 2008Q1

REPORT INFORMATION
  Report Type: 
  Country: None (occurrence: None)
  Receive Date: 20080227
  Receipt Date: 20080216
  Transmission Date: 20080703
  Serious: Yes (Other)
  Sender: FDA-Public Use
  Company Number: US-JNJFOC-20080204262

PATIENT
  Sex: Female
  Weight: 54.43 kg

DRUGS (2)
  1. TYLENOL COLD MULTI-SYMPTOM DAYTIME  COOL BURST [Suspect]
     Indication: NASOPHARYNGITIS
     Route: 048
  2. TYLENOL COLD MULTI-SYMPTOM NIGHTTIME COOL BURST [Suspect]
     Indication: NASOPHARYNGITIS
     Route: 048

REACTIONS (4)
  - DRUG ADMINISTRATION ERROR [None]
  - FEELING HOT [None]
  - HALLUCINATION [None]
  - INTENTIONAL OVERDOSE [None]
